FAERS Safety Report 20009852 (Version 1)
Quarter: 2021Q4

REPORT INFORMATION
  Report Type: Other
  Country: US (occurrence: US)
  Receive Date: 20211029
  Receipt Date: 20211029
  Transmission Date: 20220303
  Serious: Yes (Hospitalization)
  Sender: FDA-Public Use
  Company Number: US-ROCHE-2939521

PATIENT
  Sex: Female

DRUGS (1)
  1. OCREVUS [Suspect]
     Active Substance: OCRELIZUMAB
     Indication: Multiple sclerosis
     Dosage: INFUSE 600 MG INTRAVENOUSLY EVERY 5-6 MONTH(S)?LAST DATE OF TREATMENT : 27/OCT/2020
     Route: 042

REACTIONS (1)
  - Pneumonia [Unknown]
